FAERS Safety Report 8316881-5 (Version None)
Quarter: 2012Q2

REPORT INFORMATION
  Report Type: 
  Country: None (occurrence: None)
  Receive Date: 20120427
  Receipt Date: 20120419
  Transmission Date: 20120825
  Serious: Yes (Hospitalization, Other)
  Sender: FDA-Public Use
  Company Number: US-BAYER-2011-098558

PATIENT
  Age: 18 Year
  Sex: Female
  Weight: 99.773 kg

DRUGS (8)
  1. MULTI-VITAMINS [Concomitant]
     Route: 048
  2. YAZ [Suspect]
     Indication: CONTRACEPTION
  3. FERROUS SULFATE TAB [Concomitant]
     Dosage: 325 MG, TID
     Dates: start: 20090726
  4. YAZ [Suspect]
     Indication: PREMENSTRUAL SYNDROME
     Dosage: UNK, QD
     Route: 048
     Dates: start: 20080501, end: 20091101
  5. YAZ [Suspect]
     Indication: MENSTRUATION IRREGULAR
  6. YAZ [Suspect]
  7. COLACE [Concomitant]
     Dosage: 100 MG, BID
     Dates: start: 20090726
  8. IBUPROFEN [Concomitant]
     Dosage: 600 MG, UNK
     Route: 048
     Dates: start: 20090905

REACTIONS (4)
  - PANCREATITIS [None]
  - CHOLECYSTITIS CHRONIC [None]
  - PAIN [None]
  - CHOLELITHIASIS [None]
